FAERS Safety Report 14201679 (Version 2)
Quarter: 2018Q2

REPORT INFORMATION
  Report Type: Spontaneous
  Country: US (occurrence: US)
  Receive Date: 20171117
  Receipt Date: 20180504
  Transmission Date: 20180711
  Serious: Yes (Other)
  Sender: FDA-Public Use
  Company Number: PHHY2017US169877

PATIENT
  Age: 59 Year
  Sex: Female

DRUGS (9)
  1. PENTOSTATIN. [Concomitant]
     Active Substance: PENTOSTATIN
     Indication: BONE MARROW CONDITIONING REGIMEN
     Dosage: UNK
     Route: 065
  2. MYCOPHENOLATE MOFETIL. [Suspect]
     Active Substance: MYCOPHENOLATE MOFETIL
     Indication: PROPHYLAXIS AGAINST GRAFT VERSUS HOST DISEASE
  3. SIROLIMUS. [Suspect]
     Active Substance: SIROLIMUS
     Indication: PROPHYLAXIS AGAINST GRAFT VERSUS HOST DISEASE
  4. CYCLOPHOSPHAMIDE. [Suspect]
     Active Substance: CYCLOPHOSPHAMIDE
     Indication: ALLOGENIC BONE MARROW TRANSPLANTATION THERAPY
     Dosage: UNK
     Route: 065
  5. CYCLOPHOSPHAMIDE. [Concomitant]
     Active Substance: CYCLOPHOSPHAMIDE
     Indication: BONE MARROW CONDITIONING REGIMEN
     Dosage: UNK (LOW-DOSE)
     Route: 065
  6. BUSULFAN. [Concomitant]
     Active Substance: BUSULFAN
     Indication: BONE MARROW CONDITIONING REGIMEN
     Dosage: UNK
     Route: 065
  7. MYCOPHENOLATE MOFETIL. [Suspect]
     Active Substance: MYCOPHENOLATE MOFETIL
     Indication: ALLOGENIC BONE MARROW TRANSPLANTATION THERAPY
     Dosage: UNK
     Route: 065
  8. CYCLOPHOSPHAMIDE. [Suspect]
     Active Substance: CYCLOPHOSPHAMIDE
     Indication: PROPHYLAXIS AGAINST GRAFT VERSUS HOST DISEASE
  9. SIROLIMUS. [Suspect]
     Active Substance: SIROLIMUS
     Indication: ALLOGENIC BONE MARROW TRANSPLANTATION THERAPY
     Dosage: UNK
     Route: 065

REACTIONS (1)
  - Graft versus host disease in gastrointestinal tract [Unknown]
